FAERS Safety Report 8684266 (Version 3)
Quarter: 2012Q4

REPORT INFORMATION
  Report Type: 
  Country: US (occurrence: US)
  Receive Date: 20120726
  Receipt Date: 20120905
  Transmission Date: 20130627
  Serious: Yes (Other)
  Sender: FDA-Public Use
  Company Number: US-MYLANLABS-2012S1014507

PATIENT
  Age: 44 Year
  Sex: Female
  Weight: 63.5 kg

DRUGS (3)
  1. SOTRADECOL [Suspect]
     Indication: SPIDER VEIN
     Dosage: Dose unit:6
     Route: 042
     Dates: start: 20120612, end: 20120612
  2. SOTRADECOL [Suspect]
     Indication: SPIDER VEIN
     Dosage: Dose unit:9
     Route: 042
     Dates: start: 20120612, end: 20120612
  3. SOTRADECOL [Suspect]
     Indication: SPIDER VEIN
     Dosage: diluted to 2% Dose unit:12
     Route: 042
     Dates: start: 20120612, end: 20120612

REACTIONS (6)
  - Myalgia [Recovering/Resolving]
  - Hypoaesthesia [Recovering/Resolving]
  - Restless legs syndrome [Recovering/Resolving]
  - Paraesthesia [Recovering/Resolving]
  - Muscle spasms [Recovering/Resolving]
  - Formication [Recovering/Resolving]
